FAERS Safety Report 7078465-9 (Version None)
Quarter: 2010Q4

REPORT INFORMATION
  Report Type: 
  Country: None (occurrence: None)
  Receive Date: 20101102
  Receipt Date: 20101020
  Transmission Date: 20110411
  Serious: Yes (Hospitalization, Other)
  Sender: FDA-Public Use
  Company Number: PHFR2010GB03802

PATIENT
  Sex: Male

DRUGS (1)
  1. CLOZARIL [Suspect]
     Indication: SCHIZOPHRENIA
     Dosage: UNK
     Route: 048
     Dates: start: 20080901

REACTIONS (6)
  - APHAGIA [None]
  - CATATONIA [None]
  - CONVULSION [None]
  - MALAISE [None]
  - MUTISM [None]
  - PARANOIA [None]
